FAERS Safety Report 15575684 (Version 2)
Quarter: 2018Q4

REPORT INFORMATION
  Report Type: Report from Study
  Country: None (occurrence: CA)
  Receive Date: 20181101
  Receipt Date: 20181127
  Transmission Date: 20190205
  Serious: Yes (Death, Hospitalization, Other)
  Sender: FDA-Public Use
  Company Number: CA-ABBVIE-18S-028-2538198-00

PATIENT
  Age: 77 Year
  Sex: Male
  Weight: 85 kg

DRUGS (3)
  1. LUPRON [Suspect]
     Active Substance: LEUPROLIDE ACETATE
     Indication: PROSTATE CANCER
     Route: 030
  2. ENZALUTAMIDE [Concomitant]
     Active Substance: ENZALUTAMIDE
     Indication: PRODUCT USED FOR UNKNOWN INDICATION
  3. ISOSOURCE [Suspect]
     Active Substance: DIETARY SUPPLEMENT
     Indication: PRODUCT USED FOR UNKNOWN INDICATION
     Route: 065

REACTIONS (14)
  - Aspiration [Fatal]
  - Gait inability [Unknown]
  - Constipation [Unknown]
  - Open reduction of fracture [Unknown]
  - Hypertension [Unknown]
  - Dyspepsia [Unknown]
  - Fall [Unknown]
  - Liver function test increased [Unknown]
  - Cervical vertebral fracture [Unknown]
  - Cardiomyopathy [Unknown]
  - Post procedural complication [Unknown]
  - Prostate cancer [Fatal]
  - Upper airway obstruction [Unknown]
  - Dysphagia [Unknown]

NARRATIVE: CASE EVENT DATE: 201710
